FAERS Safety Report 22975514 (Version 2)
Quarter: 2023Q4

REPORT INFORMATION
  Report Type: Spontaneous
  Country: AT (occurrence: AT)
  Receive Date: 20230925
  Receipt Date: 20231205
  Transmission Date: 20240109
  Serious: Yes (Other)
  Sender: FDA-Public Use
  Company Number: AT-JNJFOC-20230945348

PATIENT
  Age: 55 Year

DRUGS (1)
  1. TECVAYLI [Suspect]
     Active Substance: TECLISTAMAB-CQYV
     Indication: Plasma cell myeloma
     Route: 065

REACTIONS (3)
  - Cytopenia [Unknown]
  - Pyrexia [Unknown]
  - C-reactive protein increased [Unknown]
